FAERS Safety Report 4965187-0 (Version None)
Quarter: 2006Q1

REPORT INFORMATION
  Report Type: 
  Country: None (occurrence: None)
  Receive Date: 20060207
  Receipt Date: 20050406
  Transmission Date: 20060701
  Serious: Yes (Life-Threatening)
  Sender: FDA-Public Use
  Company Number: 243405

PATIENT
  Age: 9 Year
  Sex: Male

DRUGS (1)
  1. NOVOLOG [Suspect]
     Indication: DIABETES MELLITUS INSULIN-DEPENDENT
     Dosage: SLIDING SCALE BEFORE MEALS, SUBCUTANEOUS
     Route: 058
     Dates: start: 20030501

REACTIONS (1)
  - HYPOGLYCAEMIC COMA [None]
